FAERS Safety Report 25900867 (Version 1)
Quarter: 2025Q4

REPORT INFORMATION
  Report Type: Spontaneous
  Country: US (occurrence: None)
  Receive Date: 20251009
  Receipt Date: 20251009
  Transmission Date: 20260118
  Serious: Yes (Other)
  Sender: FDA-CTU
  Company Number: None

PATIENT
  Sex: Female

DRUGS (8)
  1. BOTOX [Suspect]
     Active Substance: ONABOTULINUMTOXINA
     Indication: Migraine
     Dosage: OTHER STRENGTH : 200 UNIT;?OTHER QUANTITY : 155 UNITS;?OTHER FREQUENCY : EVERY 12 WEEKS;?
     Route: 030
     Dates: start: 20240105
  2. ASPIRIN LOW EC [Concomitant]
  3. ESOMEPRA MAG DR [Concomitant]
  4. FAMOTIDINE [Concomitant]
     Active Substance: FAMOTIDINE
  5. METOPROLOL TARTRATE [Concomitant]
     Active Substance: METOPROLOL TARTRATE
  6. PARAXETINE [Concomitant]
  7. UBRELVY [Concomitant]
     Active Substance: UBROGEPANT
  8. WOGOVY [Concomitant]

REACTIONS (2)
  - Cyst removal [None]
  - Salpingectomy [None]
